FAERS Safety Report 14184002 (Version 1)
Quarter: 2017Q4

REPORT INFORMATION
  Report Type: Spontaneous
  Country: US (occurrence: US)
  Receive Date: 20171113
  Receipt Date: 20171113
  Transmission Date: 20180321
  Serious: Yes (Other)
  Sender: FDA-Public Use
  Company Number: US-BAYER-2017-213701

PATIENT
  Age: 94 Year
  Sex: Female
  Weight: 55.78 kg

DRUGS (17)
  1. ATORVASTATIN [Concomitant]
     Active Substance: ATORVASTATIN
     Dosage: UNK
  2. ALEVE [Suspect]
     Active Substance: NAPROXEN SODIUM
     Indication: PAIN
     Dosage: 2 DF, UNK
     Route: 048
     Dates: end: 2017
  3. CENTRUM [Concomitant]
     Active Substance: VITAMINS
     Dosage: UNK
  4. OSTEO BI-FLEX [Concomitant]
     Active Substance: CHONDROITIN SULFATE A\GLUCOSAMINE
     Dosage: UNK
  5. APIXABAN [Concomitant]
     Active Substance: APIXABAN
  6. TYLENOL [Concomitant]
     Active Substance: ACETAMINOPHEN
     Dosage: UNK
  7. GLIPIZIDE XL [Concomitant]
     Active Substance: GLIPIZIDE
     Dosage: UNK
  8. VITAMIN D3 [Concomitant]
     Active Substance: CHOLECALCIFEROL
     Dosage: UNK
  9. MAGNESIUM [Concomitant]
     Active Substance: MAGNESIUM
     Dosage: UNK
  10. LACTOBACILLUS ACIDOPHILUS [Concomitant]
     Active Substance: LACTOBACILLUS ACIDOPHILUS
     Dosage: UNK
  11. METFORMIN [Concomitant]
     Active Substance: METFORMIN HYDROCHLORIDE
     Dosage: UNK
  12. LOSARTAN. [Concomitant]
     Active Substance: LOSARTAN
     Dosage: UNK
  13. PRESERVISION EYE VITAMIN AND MINERAL SUPPL. [Concomitant]
     Dosage: UNK
  14. OMEGA COMBINATION [Concomitant]
     Dosage: UNK
  15. METOPROLOL. [Concomitant]
     Active Substance: METOPROLOL
     Dosage: UNK
  16. COENZYME Q10 [Concomitant]
     Active Substance: UBIDECARENONE
     Dosage: UNK
  17. VITAMIN B12 [Concomitant]
     Active Substance: CYANOCOBALAMIN
     Dosage: UNK

REACTIONS (2)
  - Feeling abnormal [None]
  - Cerebrovascular accident [Recovered/Resolved]
